FAERS Safety Report 17851993 (Version 4)
Quarter: 2021Q2

REPORT INFORMATION
  Report Type: Report from Study
  Country: FR (occurrence: FR)
  Receive Date: 20200602
  Receipt Date: 20210514
  Transmission Date: 20210717
  Serious: Yes (Hospitalization, Other)
  Sender: FDA-Public Use
  Company Number: FR-JAZZ-2020-FR-007081

PATIENT

DRUGS (4)
  1. LASILIX [FUROSEMIDE] [Concomitant]
     Active Substance: FUROSEMIDE
     Indication: VENOOCCLUSIVE DISEASE
  2. DEFITELIO [Suspect]
     Active Substance: DEFIBROTIDE SODIUM
     Indication: VENOOCCLUSIVE DISEASE
     Dosage: 26.4 MILLIGRAM/KILOGRAM/DAY
     Route: 042
     Dates: start: 20191007, end: 20191112
  3. LACTULOSE. [Concomitant]
     Active Substance: LACTULOSE
     Indication: VENOOCCLUSIVE DISEASE
  4. SOLUDACTONE [Concomitant]
     Active Substance: CANRENOATE POTASSIUM\TROMETHAMINE
     Indication: VENOOCCLUSIVE DISEASE

REACTIONS (6)
  - Pain [Recovered/Resolved]
  - Interstitial lung disease [Recovered/Resolved]
  - Rhinitis [Recovered/Resolved]
  - Respiratory distress [Recovered/Resolved]
  - Urinary tract infection [Recovered/Resolved]
  - Off label use [Unknown]

NARRATIVE: CASE EVENT DATE: 20191010
